FAERS Safety Report 11446197 (Version 3)
Quarter: 2015Q4

REPORT INFORMATION
  Report Type: Report from Study
  Country: US (occurrence: US)
  Receive Date: 20150902
  Receipt Date: 20151214
  Transmission Date: 20160304
  Serious: Yes (Hospitalization)
  Sender: FDA-Public Use
  Company Number: US-ACTELION-A-US2015-118354

PATIENT
  Age: 62 Year
  Sex: Male

DRUGS (2)
  1. MACITENTAN [Suspect]
     Active Substance: MACITENTAN
     Indication: PULMONARY HYPERTENSION
     Dosage: 10 MG, QD
     Route: 048
     Dates: start: 20140820
  2. REVATIO [Concomitant]
     Active Substance: SILDENAFIL CITRATE

REACTIONS (9)
  - Mobility decreased [Recovering/Resolving]
  - Infection [Unknown]
  - Malaise [Unknown]
  - Nephropathy [Unknown]
  - Atrial flutter [Unknown]
  - Upper gastrointestinal haemorrhage [Recovering/Resolving]
  - Vomiting [Unknown]
  - Pneumonia [Unknown]
  - Small intestinal obstruction [Recovered/Resolved]

NARRATIVE: CASE EVENT DATE: 20150426
